FAERS Safety Report 10055677 (Version 1)
Quarter: 2014Q2

REPORT INFORMATION
  Report Type: Spontaneous
  Country: US (occurrence: None)
  Receive Date: 20140402
  Receipt Date: 20140402
  Transmission Date: 20141212
  Serious: Yes (Other)
  Sender: FDA-Public Use
  Company Number: None

PATIENT
  Age: 65 Year
  Sex: Female
  Weight: 70.31 kg

DRUGS (1)
  1. ATORVASTATIN [Suspect]
     Indication: BLOOD CHOLESTEROL INCREASED
     Dosage: 1 TAB ONE TIME DAILY
     Route: 048
     Dates: start: 20140224, end: 20140331

REACTIONS (5)
  - Photosensitivity reaction [None]
  - Erythema [None]
  - Swelling face [None]
  - Swollen tongue [None]
  - Lip swelling [None]
